FAERS Safety Report 4389009-4 (Version None)
Quarter: 2004Q2

REPORT INFORMATION
  Report Type: 
  Country: None (occurrence: None)
  Receive Date: 20040628
  Receipt Date: 20040615
  Transmission Date: 20050107
  Serious: Yes (Hospitalization, Other)
  Sender: FDA-Public Use
  Company Number: HQWYE449915JUN04

PATIENT
  Age: 39 Year
  Sex: Female

DRUGS (4)
  1. OROKEN (CEFIXIME,) [Suspect]
     Dosage: ORAL
     Route: 048
     Dates: start: 20031019, end: 20031020
  2. DOLIPRANE (PARACETAMOL,) [Suspect]
     Dosage: ORAL
     Route: 048
     Dates: start: 20031019, end: 20031020
  3. EXOMUC (ACETYLCYSTEINE,) [Suspect]
     Dosage: ORAL
     Route: 048
     Dates: start: 20031019, end: 20031020
  4. CELESTONE [Concomitant]

REACTIONS (2)
  - ERYTHEMA [None]
  - FACE OEDEMA [None]
